FAERS Safety Report 10159736 (Version 1)
Quarter: 2014Q2

REPORT INFORMATION
  Report Type: Spontaneous
  Country: US (occurrence: US)
  Receive Date: 20140508
  Receipt Date: 20140508
  Transmission Date: 20141212
  Serious: No
  Sender: FDA-Public Use
  Company Number: US-GLAXOSMITHKLINE-A1024314A

PATIENT
  Age: 63 Year
  Sex: Female
  Weight: 100 kg

DRUGS (8)
  1. TYKERB [Suspect]
     Indication: BREAST CANCER
     Dosage: 1250MG PER DAY
     Route: 065
     Dates: start: 20130120
  2. BACTRIM [Concomitant]
  3. FERROUS SULFATE [Concomitant]
  4. FOLIC ACID [Concomitant]
  5. FUROSEMIDE [Concomitant]
  6. LIDOCAINE + PRILOCAINE [Concomitant]
  7. LORTAB [Concomitant]
  8. MS CONTIN [Concomitant]

REACTIONS (6)
  - Palmar-plantar erythrodysaesthesia syndrome [Unknown]
  - Erythema [Unknown]
  - Pain in extremity [Unknown]
  - Neuralgia [Unknown]
  - Limb discomfort [Unknown]
  - Paraesthesia [Unknown]
